FAERS Safety Report 6340787-4 (Version None)
Quarter: 2009Q3

REPORT INFORMATION
  Report Type: 
  Country: None (occurrence: None)
  Receive Date: 20090904
  Receipt Date: 20090826
  Transmission Date: 20100115
  Serious: No
  Sender: FDA-Public Use
  Company Number: GB-ASTRAZENECA-2009SE07234

PATIENT
  Sex: Female

DRUGS (3)
  1. SYMBICORT [Suspect]
     Indication: ASTHMA
     Dosage: 200/6 UG
     Route: 055
     Dates: start: 20090101
  2. BRICANYL [Concomitant]
     Route: 065
  3. ATROVENT [Concomitant]
     Route: 065

REACTIONS (1)
  - DEVICE FAILURE [None]
